FAERS Safety Report 15852152 (Version 1)
Quarter: 2019Q1

REPORT INFORMATION
  Report Type: Spontaneous
  Country: US (occurrence: US)
  Receive Date: 20190122
  Receipt Date: 20190122
  Transmission Date: 20190417
  Serious: No
  Sender: FDA-Public Use
  Company Number: US-HORIZON-PRE-0026-2019

PATIENT
  Age: 54 Year
  Sex: Male

DRUGS (1)
  1. RAYOS [Suspect]
     Active Substance: PREDNISONE
     Indication: PRODUCT USED FOR UNKNOWN INDICATION
     Dosage: 3 TABLETS AT BEDTIME ON DAYS 1-3, 2 TABLETS ON DAYS 4-6 AND 1 TABLET ON DAYS 7-9
     Route: 048

REACTIONS (1)
  - Migraine [Recovered/Resolved]
